FAERS Safety Report 9135732 (Version 1)
Quarter: 2013Q1

REPORT INFORMATION
  Report Type: Spontaneous
  Country: BG (occurrence: BG)
  Receive Date: 20130304
  Receipt Date: 20130304
  Transmission Date: 20140127
  Serious: Yes (Life-Threatening, Hospitalization)
  Sender: FDA-Public Use
  Company Number: BG-ASTRAZENECA-2013SE13806

PATIENT
  Age: 63 Year
  Sex: Male
  Weight: 65 kg

DRUGS (10)
  1. BRILIQUE [Suspect]
     Indication: ACUTE MYOCARDIAL INFARCTION
     Route: 048
  2. INTEGRILIN [Concomitant]
     Route: 040
  3. SIOFOR [Concomitant]
     Route: 048
  4. ASPERAN [Concomitant]
     Route: 048
  5. BETALOC ZOK [Concomitant]
     Route: 048
  6. INDIPAM SR [Concomitant]
     Route: 048
  7. TINTAROS [Concomitant]
     Route: 048
  8. ZOFEN [Concomitant]
     Route: 048
  9. RENOVIA [Concomitant]
     Route: 048
  10. TRIFAS [Concomitant]
     Route: 048

REACTIONS (2)
  - Thrombosis in device [Unknown]
  - Myocardial infarction [Unknown]
